FAERS Safety Report 12853730 (Version 1)
Quarter: 2016Q4

REPORT INFORMATION
  Report Type: Spontaneous
  Country: BR (occurrence: BR)
  Receive Date: 20161017
  Receipt Date: 20161017
  Transmission Date: 20170207
  Serious: Yes (Death, Other)
  Sender: FDA-Public Use
  Company Number: BR-CIPLA LTD.-2016BR19246

PATIENT

DRUGS (1)
  1. TENOFOVIR/LAMIVUDINE/EFAVIRENZ TABLET [Suspect]
     Active Substance: EFAVIRENZ\LAMIVUDINE\TENOFOVIR
     Dosage: UNK
     Route: 064

REACTIONS (3)
  - Foetal exposure during pregnancy [Unknown]
  - Stillbirth [None]
  - Anoxia [Fatal]
